FAERS Safety Report 10190946 (Version 1)
Quarter: 2014Q2

REPORT INFORMATION
  Report Type: Spontaneous
  Country: US (occurrence: US)
  Receive Date: 20140523
  Receipt Date: 20140523
  Transmission Date: 20141212
  Serious: Yes (Other)
  Sender: FDA-Public Use
  Company Number: US-009507513-1405USA008801

PATIENT
  Sex: Female

DRUGS (1)
  1. RAGWITEK [Suspect]
     Indication: RHINITIS ALLERGIC
     Dosage: 12 AMB A,1 DF, UNK
     Route: 060
     Dates: start: 20140515, end: 20140515

REACTIONS (2)
  - Throat tightness [Recovered/Resolved]
  - Sensation of foreign body [Recovered/Resolved]
